FAERS Safety Report 7727569-3 (Version None)
Quarter: 2011Q3

REPORT INFORMATION
  Report Type: 
  Country: None (occurrence: None)
  Receive Date: 20110902
  Receipt Date: 20110822
  Transmission Date: 20111222
  Serious: Yes (Other)
  Sender: FDA-Public Use
  Company Number: BE-BAXTER-2011BH028285

PATIENT
  Age: 56 Year
  Sex: Female

DRUGS (2)
  1. EXTRANEAL [Suspect]
     Indication: PERITONEAL DIALYSIS
     Route: 033
     Dates: start: 20100517
  2. PHYSIOSOL IN PLASTIC CONTAINER [Suspect]
     Indication: PERITONEAL DIALYSIS
     Route: 033
     Dates: start: 20100517

REACTIONS (1)
  - PERITONEAL EFFLUENT ABNORMAL [None]
